FAERS Safety Report 9892839 (Version 2)
Quarter: 2014Q1

REPORT INFORMATION
  Report Type: Spontaneous
  Country: CN (occurrence: CN)
  Receive Date: 20140213
  Receipt Date: 20140213
  Transmission Date: 20141002
  Serious: Yes (Death, Other)
  Sender: FDA-Public Use
  Company Number: CN-ROCHE-1307087

PATIENT
  Age: 59 Year
  Sex: Male

DRUGS (3)
  1. HERCEPTIN [Suspect]
     Indication: HER-2 POSITIVE GASTRIC CANCER
     Dosage: 540MG (INITIAL DOSAGE)?LAST DOSAGE OF TRASTUZUMAB WAS MORE THAN 10MG.
     Route: 041
     Dates: start: 20130927, end: 20131111
  2. GIMERACIL/OTERACIL POTASSIUM [Concomitant]
     Indication: HER-2 POSITIVE GASTRIC CANCER
     Dosage: 50 MG IN THE MORNING, 75 MG IN THE EVENING
     Route: 065
     Dates: start: 20130522
  3. IRINOTECAN [Concomitant]
     Indication: HER-2 POSITIVE GASTRIC CANCER
     Route: 065
     Dates: start: 20130927

REACTIONS (3)
  - Death [Fatal]
  - Interstitial lung disease [Recovering/Resolving]
  - Pleural effusion [Recovering/Resolving]
